FAERS Safety Report 8089803-2 (Version None)
Quarter: 2012Q1

REPORT INFORMATION
  Report Type: 
  Country: None (occurrence: None)
  Receive Date: 20120128
  Receipt Date: 20110712
  Transmission Date: 20120608
  Serious: No
  Sender: FDA-Public Use
  Company Number: US-ABBOTT-11P-163-0838689-00

PATIENT
  Sex: Female
  Weight: 102.15 kg

DRUGS (12)
  1. AMITRIPTYLINE HCL [Concomitant]
     Indication: SLEEP DISORDER THERAPY
     Dosage: QHS PRN
     Dates: start: 20100901
  2. LIDOCAINE JELLY [Concomitant]
     Indication: DRUG THERAPY
     Dosage: QHS
  3. PREDNISONE TAB [Suspect]
     Indication: RHEUMATOID ARTHRITIS
     Route: 048
  4. TRIAMCINOLONE OINTMENT [Concomitant]
     Indication: DRUG THERAPY
     Dosage: PRN
  5. OXYCODONE HCL [Concomitant]
     Indication: HEADACHE
     Dosage: 5/325MG
  6. OXYCODONE HCL [Concomitant]
     Indication: RHEUMATOID ARTHRITIS
  7. VITAMIN TAB [Concomitant]
     Indication: SUPPLEMENTATION THERAPY
  8. SYNTHROID [Suspect]
     Indication: HYPOTHYROIDISM
     Route: 048
  9. LYRICA [Concomitant]
     Indication: FIBROMYALGIA
  10. METAXALONE [Concomitant]
     Indication: RHEUMATOID ARTHRITIS
     Dosage: PRN
  11. HUMIRA [Suspect]
     Indication: RHEUMATOID ARTHRITIS
     Route: 058
  12. LIDOCAINE PRESSURE POINT INJECTIONS [Concomitant]
     Indication: HEADACHE
     Dosage: MULTIPLE INJECTIONS AT ONE TIME
     Dates: start: 20100501

REACTIONS (11)
  - ARTHRITIS [None]
  - VOMITING [None]
  - RHEUMATOID ARTHRITIS [None]
  - INTRACRANIAL PRESSURE INCREASED [None]
  - HEADACHE [None]
  - CEREBRAL CYST [None]
  - WEIGHT INCREASED [None]
  - NEUROPATHY PERIPHERAL [None]
  - ORTHOSTATIC HYPOTENSION [None]
  - DIZZINESS [None]
  - GAIT DISTURBANCE [None]
